FAERS Safety Report 10273179 (Version 2)
Quarter: 2015Q3

REPORT INFORMATION
  Report Type: Spontaneous
  Country: CH (occurrence: CH)
  Receive Date: 20140702
  Receipt Date: 20150722
  Transmission Date: 20151125
  Serious: Yes (Other)
  Sender: FDA-Public Use
  Company Number: CH-TEVA-489290ISR

PATIENT
  Age: 33 Year
  Sex: Female

DRUGS (7)
  1. IRFEN [Suspect]
     Active Substance: IBUPROFEN
     Dosage: 1200 MILLIGRAM DAILY;
     Route: 048
     Dates: start: 20131215, end: 20131220
  2. ELOCOM CREME [Suspect]
     Active Substance: MOMETASONE FUROATE
     Dosage: 1 APPLICATION PER DAY
     Route: 061
     Dates: start: 20131220, end: 20131230
  3. PULMICORT SPRAY [Concomitant]
     Route: 045
     Dates: start: 20131129, end: 20131203
  4. MYDOCALM [Concomitant]
     Active Substance: TOLPERISONE
     Dosage: 150 MILLIGRAM DAILY;
     Route: 048
     Dates: start: 20131215, end: 20131220
  5. XYZAL 5MG [Concomitant]
     Dosage: 3 TABLETS TAKEN BETWEEN END OF NOV-2013 AND BEGINNING OF DEC-2013
     Route: 048
     Dates: start: 201311, end: 201312
  6. IBUPROFEN CREME [Suspect]
     Active Substance: IBUPROFEN
     Dosage: 3 LOCAL APPLICATIONS BETWEEN 15-DEC-2013 AND 20-DEC-2013
     Route: 061
     Dates: start: 20131215, end: 20131220
  7. DAFALGAN [Concomitant]
     Active Substance: ACETAMINOPHEN
     Dosage: 1000 MILLIGRAM DAILY;
     Route: 048
     Dates: start: 20140103, end: 20140104

REACTIONS (3)
  - Ultrasound scan abnormal [Unknown]
  - Foetal death [Recovered/Resolved]
  - Abortion induced [Recovered/Resolved]

NARRATIVE: CASE EVENT DATE: 201401
